FAERS Safety Report 4313403-0 (Version None)
Quarter: 2004Q1

REPORT INFORMATION
  Report Type: 
  Country: None (occurrence: None)
  Receive Date: 20040304
  Receipt Date: 20040226
  Transmission Date: 20041129
  Serious: Yes (Other)
  Sender: FDA-Public Use
  Company Number: 04-0012-PO

PATIENT
  Age: 18 Year
  Sex: Female

DRUGS (1)
  1. MEFENAMIC ACID [Suspect]
     Indication: HEADACHE
     Dosage: SEE NARRATIVE
     Dates: start: 20040222, end: 20040223

REACTIONS (1)
  - MYOCLONIC EPILEPSY [None]
